FAERS Safety Report 23083403 (Version 1)
Quarter: 2023Q4

REPORT INFORMATION
  Report Type: Spontaneous
  Country: US (occurrence: None)
  Receive Date: 20231019
  Receipt Date: 20231019
  Transmission Date: 20240110
  Serious: Yes (Other)
  Sender: FDA-Public Use
  Company Number: None

PATIENT
  Age: 66 Year
  Sex: Male
  Weight: 114.75 kg

DRUGS (2)
  1. ENTYVIO [Suspect]
     Active Substance: VEDOLIZUMAB
     Indication: Colitis ulcerative
     Dates: start: 20221228, end: 20230103
  2. ENTYVIO [Suspect]
     Active Substance: VEDOLIZUMAB
     Indication: Enterocolitis

REACTIONS (4)
  - Rash [None]
  - Gait disturbance [None]
  - Rash [None]
  - Infusion related reaction [None]

NARRATIVE: CASE EVENT DATE: 20230102
